FAERS Safety Report 14848637 (Version 2)
Quarter: 2018Q2

REPORT INFORMATION
  Report Type: Spontaneous
  Country: AU (occurrence: AU)
  Receive Date: 20180504
  Receipt Date: 20180613
  Transmission Date: 20180711
  Serious: Yes (Other)
  Sender: FDA-Public Use
  Company Number: AU-AMGEN-AUSSP2018058231

PATIENT
  Age: 63 Year
  Sex: Female

DRUGS (5)
  1. PROLIA [Suspect]
     Active Substance: DENOSUMAB
     Indication: OSTEOPOROSIS
     Dosage: UNK UNK, Q6MO
     Route: 065
     Dates: start: 20171019
  2. FISH OIL [Concomitant]
     Active Substance: FISH OIL
     Indication: CARDIAC DISORDER
     Dosage: UNK
  3. VITAMIN D [Concomitant]
     Active Substance: CHOLECALCIFEROL
     Dosage: UNK
  4. CALTRATE [Concomitant]
     Active Substance: CALCIUM CARBONATE
     Dosage: UNK
  5. PANADOL [Concomitant]
     Active Substance: ACETAMINOPHEN
     Dosage: UNK

REACTIONS (22)
  - Arthropathy [Unknown]
  - Headache [Unknown]
  - Nasopharyngitis [Unknown]
  - Gastrointestinal haemorrhage [Unknown]
  - Weight increased [Unknown]
  - Musculoskeletal pain [Unknown]
  - Pelvic fracture [Unknown]
  - Viral infection [Recovered/Resolved]
  - Nausea [Unknown]
  - Gastrointestinal disorder [Unknown]
  - Immunosuppression [Unknown]
  - Osteonecrosis [Unknown]
  - Malaise [Unknown]
  - Cardiac disorder [Unknown]
  - Arthralgia [Recovered/Resolved]
  - Atrial fibrillation [Unknown]
  - Reflux gastritis [Unknown]
  - Chest pain [Unknown]
  - Infection [Unknown]
  - Pain in extremity [Unknown]
  - Diverticulitis [Unknown]
  - Constipation [Unknown]

NARRATIVE: CASE EVENT DATE: 2017
